FAERS Safety Report 21003496 (Version 1)
Quarter: 2022Q2

REPORT INFORMATION
  Report Type: Report from Study
  Country: US (occurrence: US)
  Receive Date: 20220624
  Receipt Date: 20220624
  Transmission Date: 20220721
  Serious: Yes (Hospitalization, Other)
  Sender: FDA-Public Use
  Company Number: US-UCBSA-2022034527

PATIENT
  Age: 63 Year
  Sex: Male

DRUGS (1)
  1. BRIVARACETAM [Suspect]
     Active Substance: BRIVARACETAM
     Indication: Seizure
     Dosage: UNK, 2X/DAY (BID) (STRENGTH: 10 MILLIGRAM PER MILLILITRE)

REACTIONS (3)
  - Pneumonia [Recovered/Resolved]
  - Tracheostomy [Unknown]
  - Mechanical ventilation [Unknown]

NARRATIVE: CASE EVENT DATE: 20220601
